FAERS Safety Report 10511596 (Version 1)
Quarter: 2014Q4

REPORT INFORMATION
  Report Type: Spontaneous
  Country: DE (occurrence: DE)
  Receive Date: 20141010
  Receipt Date: 20141010
  Transmission Date: 20150528
  Serious: Yes (Hospitalization, Other)
  Sender: FDA-Public Use
  Company Number: DE-WATSON-2014-21589

PATIENT
  Age: 0 Day
  Sex: Female
  Weight: 4 kg

DRUGS (3)
  1. VENLAFAXINE (UNKNOWN) [Suspect]
     Active Substance: VENLAFAXINE HYDROCHLORIDE
     Indication: DEPRESSION
     Dosage: 250-225 MG DAILY
     Route: 064
     Dates: start: 20121123, end: 20130801
  2. RISPERIDONE (UNKNOWN) [Suspect]
     Active Substance: RISPERIDONE
     Indication: DEPRESSION
     Dosage: 4 MG, DAILY
     Route: 064
     Dates: start: 20121123, end: 20130504
  3. INSULIN                            /00646001/ [Concomitant]
     Active Substance: INSULIN NOS
     Indication: GESTATIONAL DIABETES
     Dosage: 40 IU, DAILY
     Route: 064
     Dates: start: 20130615, end: 20130801

REACTIONS (8)
  - Neonatal tachycardia [Recovered/Resolved]
  - Large for dates baby [Unknown]
  - Generalised tonic-clonic seizure [Unknown]
  - Hyperbilirubinaemia neonatal [Recovered/Resolved]
  - Agitation [Recovered/Resolved]
  - Neonatal tachypnoea [Recovered/Resolved]
  - Drug withdrawal syndrome [Recovered/Resolved]
  - Foetal exposure during pregnancy [Recovered/Resolved]

NARRATIVE: CASE EVENT DATE: 20130801
